FAERS Safety Report 8044231-0 (Version None)
Quarter: 2012Q1

REPORT INFORMATION
  Report Type: 
  Country: None (occurrence: None)
  Receive Date: 20120113
  Receipt Date: 20120109
  Transmission Date: 20120608
  Serious: Yes (Hospitalization)
  Sender: FDA-Public Use
  Company Number: MX-SANOFI-AVENTIS-2011SA000197

PATIENT
  Age: 83 Year
  Sex: Male
  Weight: 65 kg

DRUGS (6)
  1. LANTUS [Suspect]
     Route: 058
     Dates: start: 20110118
  2. HUMALOG [Concomitant]
     Indication: TYPE 2 DIABETES MELLITUS
     Route: 058
     Dates: start: 20110118
  3. PROPRANOLOL [Concomitant]
     Dosage: EVERY THIRD DAY
     Route: 048
  4. DILTIAZEM HCL [Concomitant]
     Route: 048
  5. LANTUS [Suspect]
     Route: 058
     Dates: start: 20101231, end: 20110118
  6. LANTUS [Suspect]
     Indication: TYPE 2 DIABETES MELLITUS
     Route: 058
     Dates: start: 20100101, end: 20101231

REACTIONS (4)
  - UPPER LIMB FRACTURE [None]
  - FALL [None]
  - MALAISE [None]
  - HYPERGLYCAEMIA [None]
